FAERS Safety Report 9354537 (Version 1)
Quarter: 2013Q2

REPORT INFORMATION
  Report Type: Spontaneous
  Country: JP (occurrence: JP)
  Receive Date: 20130618
  Receipt Date: 20130618
  Transmission Date: 20140414
  Serious: Yes (Other)
  Sender: FDA-Public Use
  Company Number: JP-ASTRAZENECA-2013SE38768

PATIENT
  Age: 21203 Day
  Sex: Male
  Weight: 77 kg

DRUGS (7)
  1. SYMBICORT TURBUHALER [Suspect]
     Indication: ASTHMA
     Dosage: 60 DOSES, 2 DF+2 DF DAILY
     Route: 055
     Dates: start: 201302
  2. SYMBICORT TURBUHALER [Suspect]
     Indication: ASTHMA
     Dosage: 60 DOSED, AS REQUIRED 4 DF
     Route: 055
     Dates: start: 201302
  3. SYMBICORT TURBUHALER [Suspect]
     Indication: ASTHMA
     Dosage: 60 DOSES, 2 DF TWO TIMES A DAY
     Route: 055
     Dates: end: 20130520
  4. SYMBICORT TURBUHALER [Suspect]
     Indication: ASTHMA
     Dosage: 60 DOSES, AS REQUIRED
     Route: 055
     Dates: end: 20130520
  5. THEODUR [Concomitant]
     Indication: ASTHMA
     Dosage: DOSE UNKNOWN
     Route: 048
     Dates: end: 20130520
  6. MUCODYNE [Concomitant]
     Indication: ASTHMA
     Dosage: DOSE UNKNOWN
     Route: 048
     Dates: end: 20130520
  7. MUCOSOLVAN [Concomitant]
     Indication: ASTHMA
     Dosage: DOSE UNKNOWN
     Route: 048
     Dates: end: 20130520

REACTIONS (2)
  - Visual field defect [Recovered/Resolved]
  - Palpitations [Recovered/Resolved]
